FAERS Safety Report 11810165 (Version 1)
Quarter: 2015Q4

REPORT INFORMATION
  Report Type: Spontaneous
  Country: CA (occurrence: None)
  Receive Date: 20151207
  Receipt Date: 20151207
  Transmission Date: 20160305
  Serious: No
  Sender: FDA-Public Use
  Company Number: None

PATIENT
  Age: 33 Year
  Sex: Female
  Weight: 53.07 kg

DRUGS (2)
  1. PREGNANCY VITAMINS [Concomitant]
  2. OTRIVIN [Suspect]
     Active Substance: XYLOMETAZOLINE
     Indication: EAR CONGESTION
     Route: 045
     Dates: start: 20151202, end: 20151205

REACTIONS (4)
  - Drug ineffective [None]
  - Dyspnoea [None]
  - Anxiety [None]
  - Chest pain [None]

NARRATIVE: CASE EVENT DATE: 20151205
